FAERS Safety Report 10075382 (Version 1)
Quarter: 2014Q2

REPORT INFORMATION
  Report Type: Spontaneous
  Country: JP (occurrence: JP)
  Receive Date: 20140414
  Receipt Date: 20140414
  Transmission Date: 20141212
  Serious: Yes (Hospitalization)
  Sender: FDA-Public Use
  Company Number: JP-TEVA-474881ISR

PATIENT
  Age: 58 Year
  Sex: Female
  Weight: 45 kg

DRUGS (3)
  1. ANASTROZOLE [Suspect]
     Indication: BREAST CANCER
     Dosage: 1 MG/DAY
     Route: 065
     Dates: start: 200806, end: 200907
  2. PREDNISOLONE [Concomitant]
     Indication: AUTOIMMUNE HEPATITIS
     Dosage: 30 MG/DAY; GRADUALLY REDUCED TO 5 MG/DAY
     Route: 065
     Dates: start: 199807
  3. PREDNISOLONE [Concomitant]
     Indication: AUTOIMMUNE HEPATITIS
     Dosage: 5 MG/DAY
     Route: 065
     Dates: start: 199807

REACTIONS (2)
  - Autoimmune hepatitis [Recovering/Resolving]
  - Condition aggravated [Recovering/Resolving]
